FAERS Safety Report 24682402 (Version 1)
Quarter: 2024Q4

REPORT INFORMATION
  Report Type: Report from Study
  Country: US (occurrence: US)
  Receive Date: 20241130
  Receipt Date: 20241130
  Transmission Date: 20250115
  Serious: Yes (Hospitalization, Other)
  Sender: TAKEDA
  Company Number: US-TAKEDA-US201914775

PATIENT
  Sex: Female
  Weight: 96 kg

DRUGS (4)
  1. TEDUGLUTIDE [Suspect]
     Active Substance: TEDUGLUTIDE
     Indication: Short-bowel syndrome
     Dosage: 2.29 MILLIGRAM, QD
     Dates: start: 20190305
  2. TEDUGLUTIDE [Suspect]
     Active Substance: TEDUGLUTIDE
     Dosage: 0.11 MILLILITER, QD
     Dates: start: 20240531
  3. TEDUGLUTIDE [Suspect]
     Active Substance: TEDUGLUTIDE
     Dosage: 0.11 MILLILITER, QD
  4. TEDUGLUTIDE [Suspect]
     Active Substance: TEDUGLUTIDE

REACTIONS (14)
  - Vascular device infection [Unknown]
  - Mood altered [Unknown]
  - Fatigue [Unknown]
  - Memory impairment [Unknown]
  - Muscle spasms [Unknown]
  - Pelvic pain [Unknown]
  - Drug ineffective [Unknown]
  - Pain [Unknown]
  - Pain in extremity [Unknown]
  - Loss of personal independence in daily activities [Unknown]
  - Headache [Unknown]
  - Nausea [Unknown]
  - Insomnia [Unknown]
  - Abdominal pain [Unknown]
